FAERS Safety Report 8916224 (Version 1)
Quarter: 2012Q4

REPORT INFORMATION
  Report Type: 
  Country: DE (occurrence: DE)
  Receive Date: 20121120
  Receipt Date: 20121120
  Transmission Date: 20130627
  Serious: Yes (Life-Threatening)
  Sender: FDA-Public Use
  Company Number: GXKR2012DE003499

PATIENT
  Sex: Male
  Weight: 80 kg

DRUGS (3)
  1. METHOTREXATE [Suspect]
     Indication: RHEUMATOID ARTHRITIS
     Dosage: 2.5 mg/day
     Route: 048
     Dates: start: 20120515, end: 20120626
  2. SEVIKAR HCT [Concomitant]
  3. ARCOXIA [Concomitant]
     Dosage: 90 mg/day
     Route: 048

REACTIONS (6)
  - Thrombocytopenia [Recovered/Resolved]
  - Impaired healing [Recovered/Resolved]
  - Hepatic function abnormal [Recovering/Resolving]
  - Red blood cell count decreased [Recovered/Resolved]
  - Haemoglobin decreased [Recovered/Resolved]
  - Haematocrit decreased [Recovered/Resolved]
